FAERS Safety Report 5943947-7 (Version None)
Quarter: 2008Q4

REPORT INFORMATION
  Report Type: 
  Country: None (occurrence: None)
  Receive Date: 20081106
  Receipt Date: 20081029
  Transmission Date: 20090506
  Serious: Yes (Other)
  Sender: FDA-Public Use
  Company Number: JO-TYCO HEALTHCARE/MALLINCKRODT-T200801818

PATIENT

DRUGS (1)
  1. MORPHINE [Suspect]
     Indication: ANALGESIC INTERVENTION SUPPORTIVE THERAPY

REACTIONS (2)
  - HYDRONEPHROSIS [None]
  - RENAL FAILURE ACUTE [None]
